FAERS Safety Report 13391935 (Version 1)
Quarter: 2017Q1

REPORT INFORMATION
  Report Type: Spontaneous
  Country: US (occurrence: US)
  Receive Date: 20170331
  Receipt Date: 20170331
  Transmission Date: 20170429
  Serious: No
  Sender: FDA-Public Use
  Company Number: US-BIOMARINAP-US-2017-113321

PATIENT
  Age: 53 Year
  Sex: Female

DRUGS (2)
  1. PNEUMOCOCCAL VACCINE POLYVALENT NOS [Concomitant]
     Active Substance: PNEUMOCOCCAL VACCINE POLYVALENT
     Indication: PNEUMOCOCCAL IMMUNISATION
  2. VIMIZIM [Suspect]
     Active Substance: ELOSULFASE ALFA
     Indication: MUCOPOLYSACCHARIDOSIS IV
     Dosage: 205 MG, QW
     Route: 042
     Dates: start: 20140318

REACTIONS (5)
  - Lip blister [Unknown]
  - Pyrexia [Unknown]
  - Oropharyngeal pain [Unknown]
  - Chapped lips [Unknown]
  - Sinus disorder [Unknown]

NARRATIVE: CASE EVENT DATE: 20170319
